FAERS Safety Report 19560842 (Version 2)
Quarter: 2021Q4

REPORT INFORMATION
  Report Type: Spontaneous
  Country: US (occurrence: US)
  Receive Date: 20210715
  Receipt Date: 20211210
  Transmission Date: 20220303
  Serious: No
  Sender: FDA-Public Use
  Company Number: US-TAKEDA-2021TUS042183

PATIENT
  Sex: Female

DRUGS (1)
  1. ENTYVIO [Suspect]
     Active Substance: VEDOLIZUMAB
     Indication: Product used for unknown indication
     Dosage: UNK
     Route: 065

REACTIONS (9)
  - Burning sensation [Unknown]
  - Rash pruritic [Unknown]
  - Rash macular [Unknown]
  - Dry skin [Unknown]
  - Contusion [Unknown]
  - Alopecia [Unknown]
  - Paraesthesia [Unknown]
  - Pruritus [Unknown]
  - Fatigue [Unknown]
